FAERS Safety Report 15167654 (Version 1)
Quarter: 2018Q3

REPORT INFORMATION
  Report Type: Spontaneous
  Country: IT (occurrence: IT)
  Receive Date: 20180719
  Receipt Date: 20180719
  Transmission Date: 20181010
  Serious: Yes (Hospitalization)
  Sender: FDA-Public Use
  Company Number: PHHY2018IT048925

PATIENT
  Age: 62 Year
  Sex: Female

DRUGS (2)
  1. CEFTRIAXONE. [Suspect]
     Active Substance: CEFTRIAXONE
     Indication: SKIN BACTERIAL INFECTION
     Dosage: 1 G, QD
     Route: 030
     Dates: start: 20180412, end: 20180424
  2. BACTRIM [Suspect]
     Active Substance: SULFAMETHOXAZOLE\TRIMETHOPRIM
     Indication: SKIN BACTERIAL INFECTION
     Dosage: 960 MG, QD
     Route: 048
     Dates: start: 20180412, end: 20180425

REACTIONS (2)
  - Pyrexia [Unknown]
  - Toxicity to various agents [Unknown]

NARRATIVE: CASE EVENT DATE: 20180423
